FAERS Safety Report 7434319-7 (Version None)
Quarter: 2011Q2

REPORT INFORMATION
  Report Type: 
  Country: None (occurrence: None)
  Receive Date: 20110425
  Receipt Date: 20110421
  Transmission Date: 20111010
  Serious: No
  Sender: FDA-Public Use
  Company Number: US-PFIZER INC-2011087458

PATIENT
  Sex: Female
  Weight: 83.9 kg

DRUGS (3)
  1. FISH OIL [Concomitant]
     Dosage: UNK
  2. PRISTIQ [Suspect]
     Indication: DEPRESSION
     Dosage: 50 MG, 1X/DAY
     Route: 048
     Dates: start: 20100501
  3. VITAMIN E [Concomitant]
     Dosage: UNK

REACTIONS (3)
  - RETCHING [None]
  - DYSPHAGIA [None]
  - FOREIGN BODY [None]
